FAERS Safety Report 6163264-2 (Version None)
Quarter: 2009Q2

REPORT INFORMATION
  Report Type: 
  Country: None (occurrence: None)
  Receive Date: 20090420
  Receipt Date: 20090420
  Transmission Date: 20091009
  Serious: No
  Sender: FDA-Public Use
  Company Number: None

PATIENT
  Age: 64 Year
  Sex: Male
  Weight: 80.1 kg

DRUGS (1)
  1. AMPICILLIN AND SULBACTAM [Suspect]
     Dosage: 3 GM QID IV
     Route: 042
     Dates: start: 20081120, end: 20081229

REACTIONS (1)
  - CLOSTRIDIAL INFECTION [None]
